FAERS Safety Report 10236331 (Version 1)
Quarter: 2014Q1

REPORT INFORMATION
  Report Type: Spontaneous
  Country: US (occurrence: None)
  Receive Date: 20140306
  Receipt Date: 20140306
  Transmission Date: 20141002
  Serious: Yes (Hospitalization)
  Sender: FDA-Public Use
  Company Number: 163-21880-13040598

PATIENT
  Age: 52 Year
  Sex: Male
  Weight: 77 kg

DRUGS (10)
  1. REVLIMID (LENALIDOMIDE) (25 MILLIGRAM, CAPSULES) [Suspect]
     Indication: PLASMA CELL MYELOMA
     Dosage: 25MG, 21 IN 28D, PO
     Route: 048
     Dates: start: 20120513, end: 201301
  2. HYDROMORPHONE (HYDROMORPHONE) [Concomitant]
  3. MORPHINE SULFATE (MORPHINE SULFATE) [Concomitant]
  4. PROCHLORPERAZINE (PROCHLORPERAZINE) (CAPSULES) [Concomitant]
  5. ROSUVASTATIN (ROSUVASTATIN) (TABLETS) [Concomitant]
  6. CARISOPRODOL (CARISOPRODOL) (TABLETS) [Concomitant]
  7. ZOMETA (ZOLEDRONIC ACID) [Concomitant]
  8. NYSTATIN (NYSTATIN) (SUSPENSION) [Concomitant]
  9. FLUCONAZOLE (FLUCONAZOLE) (TABLETS) [Concomitant]
  10. DEXAMETHASONE (DEXAMETHASONE) (TABLETS) [Concomitant]

REACTIONS (2)
  - Pneumonia [None]
  - Neuropathy peripheral [None]
